FAERS Safety Report 6123182-2 (Version None)
Quarter: 2009Q1

REPORT INFORMATION
  Report Type: 
  Country: None (occurrence: None)
  Receive Date: 20090318
  Receipt Date: 20090311
  Transmission Date: 20090719
  Serious: Yes (Other)
  Sender: FDA-Public Use
  Company Number: PHHY2009JP04149

PATIENT
  Age: 80 Year
  Sex: Female

DRUGS (3)
  1. DIOVAN [Suspect]
     Indication: HYPERTENSION
     Dosage: 80 MG DAILY
     Route: 048
  2. TAKEPRON [Concomitant]
     Route: 048
  3. HYSERENIN [Concomitant]

REACTIONS (1)
  - HYPOGLYCAEMIA [None]
